FAERS Safety Report 24043368 (Version 1)
Quarter: 2024Q3

REPORT INFORMATION
  Report Type: Spontaneous
  Country: CN (occurrence: CN)
  Receive Date: 20240703
  Receipt Date: 20240703
  Transmission Date: 20241016
  Serious: Yes (Other)
  Sender: AMGEN
  Company Number: CN-AMGEN-CHNSP2024127950

PATIENT
  Age: 65 Year
  Sex: Male
  Weight: 52.5 kg

DRUGS (3)
  1. XGEVA [Suspect]
     Active Substance: DENOSUMAB
     Indication: Bone cancer
     Dosage: 120 MILLIGRAM
     Route: 058
     Dates: start: 20240605, end: 20240605
  2. CISPLATIN [Suspect]
     Active Substance: CISPLATIN
     Indication: Bone cancer
     Dosage: 30 MILLIGRAM
     Route: 042
     Dates: start: 20240605, end: 20240608
  3. PACLITAXEL [Suspect]
     Active Substance: PACLITAXEL
     Indication: Bone cancer
     Dosage: 200 MILLIGRAM
     Route: 042
     Dates: start: 20240605, end: 20240605

REACTIONS (1)
  - Myelosuppression [Recovered/Resolved]

NARRATIVE: CASE EVENT DATE: 20240611
